FAERS Safety Report 7668240 (Version 5)
Quarter: 2013Q3

REPORT INFORMATION
  Report Type: Spontaneous
  Country: US (occurrence: US)
  Receive Date: 20101115
  Receipt Date: 20130806
  Transmission Date: 20140515
  Serious: Yes (Hospitalization, Other)
  Sender: FDA-Public Use
  Company Number: US-ROCHE-718956

PATIENT
  Age: 26 Year
  Sex: Male
  Weight: 78 kg

DRUGS (1)
  1. ACCUTANE [Suspect]
     Indication: ACNE
     Route: 065
     Dates: start: 19841004, end: 19850221

REACTIONS (11)
  - Small intestinal obstruction [Unknown]
  - Pulmonary embolism [Unknown]
  - Deep vein thrombosis [Unknown]
  - Colitis ulcerative [Unknown]
  - Crohn^s disease [Unknown]
  - Abdominal adhesions [Not Recovered/Not Resolved]
  - Gastrointestinal injury [Unknown]
  - Small intestinal stenosis [Unknown]
  - Inflammatory bowel disease [Unknown]
  - Osteoarthritis [Not Recovered/Not Resolved]
  - Depression [Unknown]
